FAERS Safety Report 14062006 (Version 2)
Quarter: 2017Q4

REPORT INFORMATION
  Report Type: Spontaneous
  Country: US (occurrence: US)
  Receive Date: 20171009
  Receipt Date: 20171115
  Transmission Date: 20180321
  Serious: Yes (Other)
  Sender: FDA-Public Use
  Company Number: US-PFIZER INC-2017421400

PATIENT
  Age: 71 Year
  Sex: Male
  Weight: 58.97 kg

DRUGS (2)
  1. TOVIAZ [Suspect]
     Active Substance: FESOTERODINE FUMARATE
     Indication: URINARY INCONTINENCE
     Dosage: 4 MG, 1X/DAY (LAST NIGHT)
     Dates: start: 20170927, end: 20170927
  2. TOVIAZ [Suspect]
     Active Substance: FESOTERODINE FUMARATE
     Indication: HYPERTONIC BLADDER
     Dosage: 4 MG, DAILY
     Route: 048
     Dates: start: 20170927, end: 20170928

REACTIONS (5)
  - Urinary retention [Recovering/Resolving]
  - Dysuria [Recovering/Resolving]
  - Weight decreased [Unknown]
  - Nocturia [Recovering/Resolving]
  - Urinary tract disorder [Recovered/Resolved]

NARRATIVE: CASE EVENT DATE: 20170927
